FAERS Safety Report 10012939 (Version 1)
Quarter: 2014Q1

REPORT INFORMATION
  Report Type: Spontaneous
  Country: AU (occurrence: AU)
  Receive Date: 20140314
  Receipt Date: 20140314
  Transmission Date: 20141002
  Serious: Yes (Other)
  Sender: FDA-Public Use
  Company Number: AU-ABBVIE-14P-008-1209352-00

PATIENT
  Age: 34 Year
  Sex: Male

DRUGS (1)
  1. HUMIRA [Suspect]
     Indication: PSORIASIS
     Dates: start: 201004

REACTIONS (6)
  - Grand mal convulsion [Recovered/Resolved]
  - Fatigue [Recovered/Resolved]
  - Postictal state [Recovered/Resolved]
  - Vision blurred [Not Recovered/Not Resolved]
  - Upper respiratory tract infection [Unknown]
  - Postictal state [Not Recovered/Not Resolved]
